FAERS Safety Report 16760000 (Version 1)
Quarter: 2019Q3

REPORT INFORMATION
  Report Type: Spontaneous
  Country: GB (occurrence: GB)
  Receive Date: 20190830
  Receipt Date: 20190830
  Transmission Date: 20191005
  Serious: No
  Sender: FDA-Public Use
  Company Number: GB-BEH-2019105891

PATIENT

DRUGS (2)
  1. HIZENTRA [Suspect]
     Active Substance: HUMAN IMMUNOGLOBULIN G
     Dosage: 30 MILLILITER, TOT
     Route: 058
  2. HIZENTRA [Suspect]
     Active Substance: HUMAN IMMUNOGLOBULIN G
     Dosage: 60 ML
     Route: 058

REACTIONS (4)
  - Dizziness [Unknown]
  - Nervousness [Unknown]
  - Malaise [Unknown]
  - Urinary tract infection [Unknown]
